FAERS Safety Report 9711441 (Version 1)
Quarter: 2013Q4

REPORT INFORMATION
  Report Type: Spontaneous
  Country: US (occurrence: US)
  Receive Date: 20131126
  Receipt Date: 20131126
  Transmission Date: 20140711
  Serious: Yes (Hospitalization)
  Sender: FDA-Public Use
  Company Number: US-BRISTOL-MYERS SQUIBB COMPANY-19411537

PATIENT
  Sex: Male
  Weight: 118.82 kg

DRUGS (8)
  1. BYETTA [Suspect]
     Dates: start: 20080512, end: 20080623
  2. LANTUS [Concomitant]
     Indication: DIABETES MELLITUS
  3. HUMALOG [Concomitant]
     Indication: DIABETES MELLITUS
  4. METOCLOPRAMIDE [Concomitant]
     Indication: DYSPEPSIA
  5. METFORMIN [Concomitant]
     Indication: DIABETES MELLITUS
  6. GLIMEPIRIDE [Concomitant]
  7. ZETIA [Concomitant]
     Indication: BLOOD CHOLESTEROL
  8. LIPITOR [Concomitant]
     Indication: BLOOD CHOLESTEROL

REACTIONS (1)
  - Pancreatitis acute [Recovered/Resolved]
